FAERS Safety Report 16501136 (Version 2)
Quarter: 2019Q3

REPORT INFORMATION
  Report Type: Report from Study
  Country: ZA (occurrence: ZA)
  Receive Date: 20190701
  Receipt Date: 20190822
  Transmission Date: 20191004
  Serious: Yes (Life-Threatening, Other)
  Sender: FDA-Public Use
  Company Number: ZA-SA-2019SA173966

PATIENT
  Age: 60 Year
  Sex: Female

DRUGS (4)
  1. INSULIN GLARGINE [Suspect]
     Active Substance: INSULIN GLARGINE
     Dosage: BED TIME-12 U, HS
     Dates: start: 20190524
  2. GLUCOPHAGE [Concomitant]
     Active Substance: METFORMIN HYDROCHLORIDE
     Dosage: AFTER SUPPER-1000 MG, AFTER BREAKFAST-1000 MG, BID
     Dates: start: 20080528
  3. ADCO-SIMVASTATIN [Concomitant]
     Active Substance: SIMVASTATIN
     Dosage: BED TIME-40 MG, HS
     Dates: start: 20190523
  4. DIAGLUCIDE [Concomitant]
     Active Substance: GLICLAZIDE
     Dosage: AFTER SUPPER-60 MG, AFTER BREAKFAST-60 MG, BID
     Dates: start: 20080528

REACTIONS (4)
  - Pruritus generalised [Not Recovered/Not Resolved]
  - Infection [Not Recovered/Not Resolved]
  - Musculoskeletal discomfort [Not Recovered/Not Resolved]
  - Influenza [Not Recovered/Not Resolved]

NARRATIVE: CASE EVENT DATE: 20190624
